FAERS Safety Report 7204819-3 (Version None)
Quarter: 2010Q4

REPORT INFORMATION
  Report Type: 
  Country: None (occurrence: None)
  Receive Date: 20101230
  Receipt Date: 20101221
  Transmission Date: 20110411
  Serious: Yes (Hospitalization)
  Sender: FDA-Public Use
  Company Number: US-WATSON-2010-16281

PATIENT
  Age: 55 Year
  Sex: Male
  Weight: 78.458 kg

DRUGS (1)
  1. FENTANYL-50 [Suspect]
     Indication: RHEUMATOID ARTHRITIS
     Dosage: 1 PATCH X 1 (SINGLE)
     Route: 062
     Dates: start: 20101202, end: 20101203

REACTIONS (5)
  - APPLICATION SITE ERYTHEMA [None]
  - APPLICATION SITE PRURITUS [None]
  - EAR INFECTION [None]
  - GASTRIC ULCER [None]
  - MOTION SICKNESS [None]
